FAERS Safety Report 13341581 (Version 1)
Quarter: 2017Q1

REPORT INFORMATION
  Report Type: Spontaneous
  Country: US (occurrence: US)
  Receive Date: 20170316
  Receipt Date: 20170316
  Transmission Date: 20170428
  Serious: No
  Sender: FDA-Public Use
  Company Number: US-ROCHE-1833989

PATIENT
  Sex: Male

DRUGS (1)
  1. ERIVEDGE [Suspect]
     Active Substance: VISMODEGIB
     Indication: SKIN CANCER
     Route: 048
     Dates: start: 20160830

REACTIONS (1)
  - Diarrhoea [Recovering/Resolving]
